FAERS Safety Report 5188790-4 (Version None)
Quarter: 2006Q4

REPORT INFORMATION
  Report Type: 
  Country: None (occurrence: None)
  Receive Date: 20061215
  Receipt Date: 20061207
  Transmission Date: 20070319
  Serious: Yes (Other)
  Sender: FDA-Public Use
  Company Number: SPV1-2006-02054

PATIENT
  Sex: Female

DRUGS (2)
  1. DAYTRANA [Suspect]
     Dosage: TRANSDERMAL
     Route: 062
     Dates: start: 20061201, end: 20061204
  2. CONCERTA [Concomitant]

REACTIONS (1)
  - PSYCHOTIC DISORDER [None]
